FAERS Safety Report 15867355 (Version 2)
Quarter: 2019Q1

REPORT INFORMATION
  Report Type: Spontaneous
  Country: PL (occurrence: PL)
  Receive Date: 20190125
  Receipt Date: 20190205
  Transmission Date: 20190417
  Serious: Yes (Hospitalization, Other)
  Sender: FDA-Public Use
  Company Number: PL-JNJFOC-20190121859

PATIENT
  Age: 35 Year
  Sex: Male
  Weight: 110 kg

DRUGS (14)
  1. RISPOLEPT [Suspect]
     Active Substance: RISPERIDONE
     Indication: SCHIZOPHRENIA
     Route: 048
     Dates: start: 20181113
  2. RISPOLEPT [Suspect]
     Active Substance: RISPERIDONE
     Indication: SCHIZOPHRENIA
     Route: 048
  3. PRIDINOL [Concomitant]
     Active Substance: PRIDINOL
     Indication: PRODUCT USED FOR UNKNOWN INDICATION
     Route: 065
  4. MAGLEK B6 [Concomitant]
     Route: 065
  5. RISPOLEPT [Suspect]
     Active Substance: RISPERIDONE
     Indication: SCHIZOPHRENIA
     Route: 048
     Dates: end: 20190122
  6. LEVOMEPROMAZINUM [Suspect]
     Active Substance: LEVOMEPROMAZINE
     Indication: INSOMNIA
     Route: 065
  7. IBUPROM [Concomitant]
     Active Substance: IBUPROFEN
     Dosage: PRN MEDICINE
     Route: 065
  8. OLIMP ARTHROBLOCK [Concomitant]
     Route: 065
  9. DICLOFENAC SODIUM. [Concomitant]
     Active Substance: DICLOFENAC SODIUM
     Route: 065
  10. SPAMILAN [Suspect]
     Active Substance: BUSPIRONE HYDROCHLORIDE
     Indication: PRODUCT USED FOR UNKNOWN INDICATION
     Route: 065
  11. KETREL [Suspect]
     Active Substance: TRETINOIN
     Indication: PRODUCT USED FOR UNKNOWN INDICATION
     Route: 065
  12. VITAMIN B COMPLEX [Concomitant]
     Active Substance: CYANOCOBALAMIN\DEXPANTHENOL\NIACINAMIDE\PYRIDOXINE HYDROCHLORIDE\RIBOFLAVIN 5^-PHOSPHATE SODIUM\THIAMINE HYDROCHLORIDE\VITAMIN B COMPLEX
     Route: 065
  13. CLORANXEN [Suspect]
     Active Substance: CLORAZEPATE DIPOTASSIUM
     Indication: PRODUCT USED FOR UNKNOWN INDICATION
     Route: 065
  14. ANAFRANIL [Suspect]
     Active Substance: CLOMIPRAMINE HYDROCHLORIDE
     Indication: PRODUCT USED FOR UNKNOWN INDICATION
     Route: 065

REACTIONS (18)
  - Insomnia [Unknown]
  - Dysgraphia [Recovering/Resolving]
  - Paraesthesia [Recovered/Resolved]
  - Tachyphrenia [Unknown]
  - Back pain [Unknown]
  - Vision blurred [Recovered/Resolved]
  - Tremor [Not Recovered/Not Resolved]
  - Loss of consciousness [Unknown]
  - Arthralgia [Unknown]
  - Constipation [Recovered/Resolved]
  - Chest pain [Unknown]
  - Dyskinesia [Unknown]
  - Increased appetite [Unknown]
  - Headache [Unknown]
  - Disturbance in attention [Recovered/Resolved]
  - Dyspepsia [Unknown]
  - Dysphemia [Not Recovered/Not Resolved]
  - Alopecia [Recovered/Resolved]
